FAERS Safety Report 17101878 (Version 1)
Quarter: 2019Q4

REPORT INFORMATION
  Report Type: Spontaneous
  Country: GB (occurrence: GB)
  Receive Date: 20191202
  Receipt Date: 20191202
  Transmission Date: 20200122
  Serious: Yes (Life-Threatening)
  Sender: FDA-Public Use
  Company Number: GB-PFIZER INC-2019515102

PATIENT
  Age: 43 Year
  Sex: Female
  Weight: 64 kg

DRUGS (1)
  1. ATRACURIUM BESILATE [Suspect]
     Active Substance: ATRACURIUM BESYLATE
     Indication: PARALYSIS
     Dosage: 30 MG, UNK
     Route: 042
     Dates: start: 20050303

REACTIONS (3)
  - Mouth swelling [Recovered/Resolved]
  - Eye swelling [Recovered/Resolved]
  - Peripheral swelling [Recovered/Resolved]

NARRATIVE: CASE EVENT DATE: 20050303
